FAERS Safety Report 19381013 (Version 1)
Quarter: 2021Q2

REPORT INFORMATION
  Report Type: Spontaneous
  Country: US (occurrence: US)
  Receive Date: 20210604
  Receipt Date: 20210604
  Transmission Date: 20210717
  Serious: Yes (Other)
  Sender: FDA-Public Use
  Company Number: None

PATIENT
  Age: 34 Year
  Sex: Female
  Weight: 82.8 kg

DRUGS (13)
  1. MOTRIN [Concomitant]
     Active Substance: IBUPROFEN
  2. CIMZIA [Suspect]
     Active Substance: CERTOLIZUMAB PEGOL
     Indication: RHEUMATOID ARTHRITIS
  3. MELATONIN [Concomitant]
     Active Substance: MELATONIN
  4. NEURONTIN [Concomitant]
     Active Substance: GABAPENTIN
  5. WELLBUTRIN [Concomitant]
     Active Substance: BUPROPION HYDROCHLORIDE
  6. VIT D [Concomitant]
     Active Substance: VITAMIN D NOS
  7. TYLENOL [Concomitant]
     Active Substance: ACETAMINOPHEN
  8. CIMZIA [Suspect]
     Active Substance: CERTOLIZUMAB PEGOL
     Indication: SJOGREN^S SYNDROME
  9. ZOLOFT [Concomitant]
     Active Substance: SERTRALINE HYDROCHLORIDE
  10. DOXYCYCLINE. [Concomitant]
     Active Substance: DOXYCYCLINE
  11. MAGNESIUM [Concomitant]
     Active Substance: MAGNESIUM
  12. COPACETIC [Concomitant]
  13. UNISON [Concomitant]

REACTIONS (3)
  - Arthralgia [None]
  - Hypersensitivity [None]
  - Pain in extremity [None]

NARRATIVE: CASE EVENT DATE: 20210603
